FAERS Safety Report 4756568-9 (Version None)
Quarter: 2005Q3

REPORT INFORMATION
  Report Type: 
  Country: None (occurrence: None)
  Receive Date: 20050830
  Receipt Date: 20050819
  Transmission Date: 20060218
  Serious: Yes (Hospitalization)
  Sender: FDA-Public Use
  Company Number: 200512765EU

PATIENT
  Age: 79 Year
  Sex: Female

DRUGS (7)
  1. PENTOXIFYLLINE [Suspect]
     Indication: INTERMITTENT CLAUDICATION
     Route: 048
     Dates: start: 20000107
  2. NPH INSULIN [Concomitant]
     Indication: DIABETES MELLITUS
     Dates: start: 19880101
  3. DILTIAZEM [Concomitant]
     Indication: DRUG USE FOR UNKNOWN INDICATION
     Dates: start: 19890101, end: 20000210
  4. ZOCOR [Concomitant]
     Indication: DRUG USE FOR UNKNOWN INDICATION
     Dates: start: 19880101
  5. PRILOSEC [Concomitant]
     Indication: DRUG USE FOR UNKNOWN INDICATION
     Dates: start: 19991211, end: 20000124
  6. LASIX [Concomitant]
     Indication: DRUG USE FOR UNKNOWN INDICATION
     Dates: start: 19890101
  7. CARDIZEM CD [Concomitant]
     Indication: DRUG USE FOR UNKNOWN INDICATION
     Dates: start: 20000210

REACTIONS (3)
  - FEELING HOT [None]
  - HYPOGLYCAEMIA [None]
  - SYNCOPE [None]
